FAERS Safety Report 26195460 (Version 2)
Quarter: 2025Q4

REPORT INFORMATION
  Report Type: Spontaneous
  Country: EU (occurrence: EU)
  Receive Date: 20251224
  Receipt Date: 20251231
  Transmission Date: 20260118
  Serious: Yes (Other)
  Sender: AMGEN
  Company Number: None

PATIENT
  Age: 91 Year
  Sex: Female

DRUGS (1)
  1. PROLIA [Suspect]
     Active Substance: DENOSUMAB
     Indication: Product used for unknown indication
     Dosage: 60 MILLIGRAM, QMO (RECEIVED EVERY 6 MONTHS FROM THE FAMILY DOCTOR FOR YEARS, LAST ADMINISTRATION: OC
     Route: 058
     Dates: end: 202510

REACTIONS (1)
  - Osteonecrosis of external auditory canal [Not Recovered/Not Resolved]

NARRATIVE: CASE EVENT DATE: 20230403
